FAERS Safety Report 9496899 (Version 1)
Quarter: 2013Q3

REPORT INFORMATION
  Report Type: Spontaneous
  Country: US (occurrence: US)
  Receive Date: 20130904
  Receipt Date: 20130904
  Transmission Date: 20140515
  Serious: No
  Sender: FDA-Public Use
  Company Number: US-009507513-1309USA000683

PATIENT
  Age: 77 Year
  Sex: Female

DRUGS (10)
  1. ASMANEX TWISTHALER [Suspect]
     Indication: ASTHMA
     Dosage: ONE INHALATION ONCE A DAY IN THE MORNING
     Route: 055
     Dates: start: 2010
  2. ASMANEX TWISTHALER [Suspect]
     Indication: EMPHYSEMA
  3. SPIRIVA [Concomitant]
     Dosage: UNK
  4. PRAVASTATIN SODIUM [Concomitant]
     Dosage: UNK
  5. LEVOTHYROXINE SODIUM [Concomitant]
     Dosage: UNK
  6. AMOXICILLIN [Concomitant]
     Dosage: UNK
  7. FOLIC ACID [Concomitant]
     Dosage: UNK
  8. CYANOCOBALAMIN [Concomitant]
     Dosage: UNK
  9. VITAMINS (UNSPECIFIED) [Concomitant]
     Dosage: UNK
  10. OS-CAL (CALCIUM CARBONATE) [Concomitant]
     Dosage: UNK

REACTIONS (2)
  - Dyspnoea [Not Recovered/Not Resolved]
  - Drug dose omission [Unknown]
